FAERS Safety Report 10596642 (Version 1)
Quarter: 2014Q4

REPORT INFORMATION
  Report Type: Spontaneous
  Country: RU (occurrence: RU)
  Receive Date: 20141120
  Receipt Date: 20141120
  Transmission Date: 20150529
  Serious: Yes (Other)
  Sender: FDA-Public Use
  Company Number: RU-ASTRAZENECA-2014SE86616

PATIENT
  Age: 28 Year
  Sex: Female

DRUGS (1)
  1. EMLA [Suspect]
     Active Substance: LIDOCAINE\PRILOCAINE
     Indication: ANAESTHESIA
     Route: 061
     Dates: start: 201409

REACTIONS (1)
  - Syncope [Recovered/Resolved]
